FAERS Safety Report 23611070 (Version 1)
Quarter: 2024Q1

REPORT INFORMATION
  Report Type: Spontaneous
  Country: US (occurrence: US)
  Receive Date: 20240308
  Receipt Date: 20240308
  Transmission Date: 20240410
  Serious: Yes (Other)
  Sender: FDA-Public Use
  Company Number: US-Crown Laboratories, Inc.-2154178

PATIENT
  Sex: Male

DRUGS (1)
  1. DESENEX (MICONAZOLE NITRATE) [Suspect]
     Active Substance: MICONAZOLE NITRATE
     Route: 061

REACTIONS (2)
  - Respiratory disorder [Unknown]
  - Hypersensitivity [Unknown]
